FAERS Safety Report 20683177 (Version 2)
Quarter: 2022Q2

REPORT INFORMATION
  Report Type: Spontaneous
  Country: IT (occurrence: IT)
  Receive Date: 20220407
  Receipt Date: 20220518
  Transmission Date: 20220721
  Serious: Yes (Other)
  Sender: FDA-Public Use
  Company Number: IT-009507513-2204ITA001825

PATIENT
  Age: 76 Year
  Sex: Male

DRUGS (4)
  1. PEMBROLIZUMAB [Suspect]
     Active Substance: PEMBROLIZUMAB
     Indication: Lung squamous cell carcinoma stage IV
     Dosage: 200 MILLIGRAM, EVERY 21 DAYS
     Dates: start: 202002
  2. TAXOL [Suspect]
     Active Substance: PACLITAXEL
     Indication: Lung squamous cell carcinoma stage IV
     Dosage: 100 MILLIGRAM/SQ. METER, CYCLICAL
     Dates: start: 202002
  3. CARBOPLATIN [Suspect]
     Active Substance: CARBOPLATIN
     Indication: Lung squamous cell carcinoma stage IV
     Dosage: AREA UNDER CURVE (AUC) 4, CYCLICAL
     Dates: start: 202002
  4. INSULIN NOS [Concomitant]
     Active Substance: INSULIN NOS
     Indication: Insulin-requiring type 2 diabetes mellitus
     Dosage: UNK

REACTIONS (4)
  - Deep vein thrombosis [Recovered/Resolved]
  - Anaemia [Unknown]
  - Asthenia [Unknown]
  - Dyspnoea [Unknown]

NARRATIVE: CASE EVENT DATE: 20200101
